FAERS Safety Report 20810279 (Version 2)
Quarter: 2022Q2

REPORT INFORMATION
  Report Type: Report from Study
  Country: US (occurrence: US)
  Receive Date: 20220510
  Receipt Date: 20220613
  Transmission Date: 20220721
  Serious: Yes (Hospitalization, Other)
  Sender: FDA-Public Use
  Company Number: US-BIOVITRUM-2022US03669

PATIENT
  Sex: Female

DRUGS (3)
  1. KINERET [Suspect]
     Active Substance: ANAKINRA
     Indication: Rheumatoid arthritis
     Route: 058
     Dates: start: 20190524
  2. KINERET [Suspect]
     Active Substance: ANAKINRA
     Route: 058
     Dates: start: 201905
  3. KINERET [Suspect]
     Active Substance: ANAKINRA
     Route: 058
     Dates: start: 20220506

REACTIONS (8)
  - Chest discomfort [Unknown]
  - Renal impairment [Unknown]
  - Contusion [Unknown]
  - Back pain [Unknown]
  - Hypotension [Unknown]
  - Balance disorder [Unknown]
  - Injection site pain [Unknown]
  - Off label use [Unknown]
